FAERS Safety Report 5587495-5 (Version None)
Quarter: 2008Q1

REPORT INFORMATION
  Report Type: 
  Country: None (occurrence: None)
  Receive Date: 20080110
  Receipt Date: 20071221
  Transmission Date: 20080703
  Serious: Yes (Other)
  Sender: FDA-Public Use
  Company Number: US-GILEAD-2007-0014735

PATIENT
  Sex: Female
  Weight: 101.24 kg

DRUGS (7)
  1. LETAIRIS [Suspect]
     Indication: PULMONARY HYPERTENSION
  2. LASIX [Concomitant]
  3. POTASSIUM CHLORIDE [Concomitant]
  4. AVALIDE [Concomitant]
     Dosage: 150 MG-12.5 MG
  5. FLONASE [Concomitant]
     Route: 045
  6. REVATIO [Concomitant]
     Route: 048
  7. VERAPAMIL [Concomitant]
     Route: 048

REACTIONS (5)
  - FATIGUE [None]
  - OEDEMA PERIPHERAL [None]
  - STOMATITIS [None]
  - SWELLING FACE [None]
  - WEIGHT INCREASED [None]
